FAERS Safety Report 4522536-5 (Version None)
Quarter: 2004Q4

REPORT INFORMATION
  Report Type: 
  Country: None (occurrence: None)
  Receive Date: 20041209
  Receipt Date: 20041129
  Transmission Date: 20050328
  Serious: Yes (Hospitalization)
  Sender: FDA-Public Use
  Company Number: FR-BRISTOL-MYERS SQUIBB COMPANY-12776621

PATIENT
  Age: 83 Year
  Sex: Male

DRUGS (6)
  1. AVAPRO [Suspect]
     Indication: ESSENTIAL HYPERTENSION
     Route: 048
  2. DIGOXIN [Suspect]
     Indication: ARRHYTHMIA
     Route: 048
  3. LASILIX [Suspect]
     Indication: ESSENTIAL HYPERTENSION
     Route: 048
  4. CORDARONE [Interacting]
     Indication: ARRHYTHMIA
     Route: 048
  5. PREVISCAN [Interacting]
     Route: 048
  6. DEROXAT [Interacting]
     Indication: DYSTHYMIC DISORDER
     Route: 048

REACTIONS (2)
  - DRUG INTERACTION [None]
  - PROTHROMBIN LEVEL INCREASED [None]
